FAERS Safety Report 10411436 (Version 2)
Quarter: 2014Q3

REPORT INFORMATION
  Report Type: Report from Study
  Country: US (occurrence: US)
  Receive Date: 20140827
  Receipt Date: 20140905
  Transmission Date: 20150326
  Serious: Yes (Hospitalization)
  Sender: FDA-Public Use
  Company Number: US-009507513-1408USA014360

PATIENT
  Age: 33 Year
  Sex: Male
  Weight: 93 kg

DRUGS (7)
  1. FLUOROURACIL, IRINOTECAN HYDROCHLORIDE, LEUCOVORIN CALCIUM, OXALIPLATI [Suspect]
     Active Substance: FLUOROURACIL\IRINOTECAN\LEUCOVORIN\OXALIPLATIN
     Dosage: AS PER STANDARD OF CARE
     Dates: start: 20140818
  2. CREON (PANCRELIPASE) [Concomitant]
  3. DILAUDID [Concomitant]
     Active Substance: HYDROMORPHONE HYDROCHLORIDE
     Indication: PAIN
     Dosage: UNK, PRN
  4. FOSAPREPITANT DIMEGLUMINE [Suspect]
     Active Substance: FOSAPREPITANT DIMEGLUMINE
     Indication: PANCREATIC CARCINOMA METASTATIC
     Dosage: 150 MG, UNK
     Route: 042
     Dates: start: 20140818
  5. COMPAZINE [Concomitant]
     Active Substance: PROCHLORPERAZINE MALEATE
     Dosage: 40 MG, PRN
     Route: 048
  6. P-COL [Concomitant]
     Dosage: UNK, BID
     Route: 048
  7. FENTANYL. [Concomitant]
     Active Substance: FENTANYL
     Dosage: 100 MICROGRAM, Q72HRS
     Route: 062

REACTIONS (2)
  - Nausea [Not Recovered/Not Resolved]
  - Vomiting [Not Recovered/Not Resolved]

NARRATIVE: CASE EVENT DATE: 20140820
